FAERS Safety Report 7374763-X (Version None)
Quarter: 2011Q1

REPORT INFORMATION
  Report Type: 
  Country: None (occurrence: None)
  Receive Date: 20110325
  Receipt Date: 20101208
  Transmission Date: 20110831
  Serious: No
  Sender: FDA-Public Use
  Company Number: US-MYLANLABS-2010S1019415

PATIENT
  Age: 54 Year
  Sex: Female

DRUGS (6)
  1. FENTANYL-100 [Suspect]
     Indication: SCIATIC NERVE INJURY
     Dosage: Q72H
     Route: 062
     Dates: start: 20100803
  2. CALCIUM [Concomitant]
     Route: 048
  3. FENTANYL-100 [Suspect]
     Indication: NECK INJURY
     Dosage: Q72H
     Route: 062
     Dates: start: 20100803
  4. VITAMIN D [Concomitant]
     Route: 048
  5. FENTANYL-100 [Suspect]
     Indication: MUSCULAR DYSTROPHY
     Dosage: Q72H
     Route: 062
     Dates: start: 20100803
  6. FENTANYL-100 [Suspect]
     Indication: SPINAL COLUMN INJURY
     Dosage: Q72H
     Route: 062
     Dates: start: 20100803

REACTIONS (6)
  - APPLICATION SITE PRURITUS [None]
  - APPLICATION SITE ERYTHEMA [None]
  - DRUG EFFECT DECREASED [None]
  - PAIN [None]
  - APPLICATION SITE HAEMATOMA [None]
  - APPLICATION SITE OEDEMA [None]
